FAERS Safety Report 23976142 (Version 1)
Quarter: 2024Q2

REPORT INFORMATION
  Report Type: Spontaneous
  Country: FR (occurrence: FR)
  Receive Date: 20240614
  Receipt Date: 20240614
  Transmission Date: 20240716
  Serious: Yes (Other)
  Sender: FDA-Public Use
  Company Number: FR-AFSSAPS-AVNT2024000404

PATIENT
  Age: 46 Year
  Sex: Female

DRUGS (2)
  1. ESCITALOPRAM [Suspect]
     Active Substance: ESCITALOPRAM OXALATE
     Indication: Product used for unknown indication
     Dosage: UNK (20 MG IN THE MORNING)
     Route: 048
     Dates: start: 2004
  2. PRAZEPAM [Suspect]
     Active Substance: PRAZEPAM
     Indication: Product used for unknown indication
     Dosage: UNK (10 MG MORNING AND EVENING +0.5 TABLETS DURING THE DAY)
     Route: 048
     Dates: start: 2004

REACTIONS (1)
  - Drug use disorder [Not Recovered/Not Resolved]
